FAERS Safety Report 5485473-8 (Version None)
Quarter: 2007Q4

REPORT INFORMATION
  Report Type: 
  Country: None (occurrence: None)
  Receive Date: 20071015
  Receipt Date: 20071004
  Transmission Date: 20080405
  Serious: Yes (Other)
  Sender: FDA-Public Use
  Company Number: US-ELI_LILLY_AND_COMPANY-US200709003571

PATIENT
  Sex: Male

DRUGS (2)
  1. ZYPREXA [Suspect]
     Dosage: 10 MG, UNK
     Route: 030
  2. ATIVAN [Concomitant]
     Dosage: 10 MG, UNK
     Route: 030

REACTIONS (1)
  - RESPIRATORY DISTRESS [None]
